FAERS Safety Report 6810589-0 (Version None)
Quarter: 2010Q2

REPORT INFORMATION
  Report Type: 
  Country: None (occurrence: None)
  Receive Date: 20100630
  Receipt Date: 20100628
  Transmission Date: 20101027
  Serious: Yes (Death)
  Sender: FDA-Public Use
  Company Number: US-MEDIMMUNE-MEDI-0011370

PATIENT
  Sex: Male

DRUGS (7)
  1. SYNAGIS [Suspect]
     Dates: start: 20100401, end: 20100520
  2. FUROSEMIDE [Concomitant]
  3. MORPHINE SULFATE [Concomitant]
  4. RITALIN [Concomitant]
  5. LORAZEPAM [Concomitant]
  6. POTASSIUM CHLORIDE [Concomitant]
  7. METHADONE [Concomitant]

REACTIONS (1)
  - CARDIAC FAILURE [None]
